FAERS Safety Report 9242327 (Version 1)
Quarter: 2013Q2

REPORT INFORMATION
  Report Type: Spontaneous
  Country: IT (occurrence: IT)
  Receive Date: 20130419
  Receipt Date: 20130419
  Transmission Date: 20140414
  Serious: Yes (Other)
  Sender: FDA-Public Use
  Company Number: IT-TEVA-397595ISR

PATIENT
  Age: 45 Year
  Sex: Male
  Weight: 90 kg

DRUGS (7)
  1. VINCRISTINA TEVA [Suspect]
     Indication: NON-HODGKIN^S LYMPHOMA
     Dosage: 2 MILLIGRAM DAILY; 2 MG CYCLICAL
     Route: 042
     Dates: start: 20130215, end: 20130318
  2. MABTHERA [Suspect]
     Indication: NON-HODGKIN^S LYMPHOMA
     Dosage: 750 MILLIGRAM DAILY; 750 MG CYCLICAL, 500 MG / 50 ML
     Route: 042
     Dates: start: 20130215, end: 20130318
  3. ADRIBLASTINA [Suspect]
     Indication: NON-HODGKIN^S LYMPHOMA
     Dosage: 100 MILLIGRAM DAILY; 100 MG CYCLICAL
     Route: 042
     Dates: start: 20130215, end: 20130318
  4. ENDOXAN BAXTER [Suspect]
     Indication: NON-HODGKIN^S LYMPHOMA
     Dosage: 1500 MILLIGRAM DAILY; 1500 MG CYCLICAL
     Route: 042
     Dates: start: 20130215, end: 20130318
  5. SOLDESAM [Concomitant]
     Indication: NON-HODGKIN^S LYMPHOMA
     Dosage: 4 MILLIGRAM DAILY; 4 MG/ML
     Route: 042
     Dates: start: 20130215, end: 20130318
  6. ONDANSETRONE HIKMA [Concomitant]
     Indication: NON-HODGKIN^S LYMPHOMA
     Dosage: 8 MILLIGRAM DAILY;
     Route: 042
     Dates: start: 20130215, end: 20130318
  7. RANIDIL [Concomitant]
     Indication: NON-HODGKIN^S LYMPHOMA
     Dosage: 50 MILLIGRAM DAILY;
     Route: 042
     Dates: start: 20130215, end: 20130318

REACTIONS (1)
  - Neutropenia [Unknown]
